FAERS Safety Report 8239333-X (Version None)
Quarter: 2012Q1

REPORT INFORMATION
  Report Type: 
  Country: None (occurrence: None)
  Receive Date: 20120326
  Receipt Date: 20120314
  Transmission Date: 20120608
  Serious: Yes (Other)
  Sender: FDA-Public Use
  Company Number: 2012-00091

PATIENT
  Age: 86 Year
  Sex: Female
  Weight: 65.7716 kg

DRUGS (2)
  1. AMOXICILLIN [Concomitant]
  2. ZICAM EXTREME CONGESTION NASAL GEL [Suspect]
     Indication: NASOPHARYNGITIS
     Dosage: 2 DOSES DAILY
     Dates: start: 20120229

REACTIONS (2)
  - PANIC REACTION [None]
  - AGITATION [None]
